FAERS Safety Report 6169827-2 (Version None)
Quarter: 2009Q2

REPORT INFORMATION
  Report Type: 
  Country: None (occurrence: None)
  Receive Date: 20090424
  Receipt Date: 20090416
  Transmission Date: 20091009
  Serious: Yes (Life-Threatening, Other)
  Sender: FDA-Public Use
  Company Number: 250467

PATIENT
  Age: 63 Year
  Sex: Male
  Weight: 80 kg

DRUGS (1)
  1. (ETHANOL) [Suspect]
     Indication: ALCOHOL POISONING
     Dosage: 545 ML, INTRAVENOUS
     Route: 042

REACTIONS (8)
  - ALCOHOLIC [None]
  - BLOOD PRESSURE DECREASED [None]
  - CARDIAC ARREST [None]
  - HEART RATE DECREASED [None]
  - KETOACIDOSIS [None]
  - OFF LABEL USE [None]
  - SEPSIS [None]
  - VENTRICULAR TACHYCARDIA [None]
